FAERS Safety Report 18222217 (Version 1)
Quarter: 2020Q3

REPORT INFORMATION
  Report Type: Spontaneous
  Country: CN (occurrence: CN)
  Receive Date: 20200902
  Receipt Date: 20200902
  Transmission Date: 20201103
  Serious: Yes (Hospitalization)
  Sender: FDA-Public Use
  Company Number: CN-PFIZER INC-2020335721

PATIENT
  Age: 31 Year
  Sex: Female
  Weight: 71 kg

DRUGS (6)
  1. PALONOSETRON HYDROCHLORIDE. [Concomitant]
     Active Substance: PALONOSETRON HYDROCHLORIDE
     Indication: PROPHYLAXIS OF NAUSEA AND VOMITING
     Dosage: 0.25 MG
  2. PARAPLATIN [Suspect]
     Active Substance: CARBOPLATIN
     Indication: ENDOMETRIAL CANCER
     Dosage: 750 MG, 1X/DAY
     Route: 041
     Dates: start: 20200811, end: 20200811
  3. CIMETIDINE [Concomitant]
     Active Substance: CIMETIDINE
     Indication: GASTROINTESTINAL DISORDER PROPHYLAXIS
     Dosage: 0.3 G
  4. ANZATAX [PACLITAXEL] [Suspect]
     Active Substance: PACLITAXEL
     Indication: ENDOMETRIAL CANCER
     Dosage: 270 MG, 1X/DAY
     Route: 041
     Dates: start: 20200811, end: 20200811
  5. DEXAMETHASONE. [Concomitant]
     Active Substance: DEXAMETHASONE
     Indication: ANTIALLERGIC THERAPY
     Dosage: 7.5 MG
     Route: 048
  6. DEXAMETHASONE. [Concomitant]
     Active Substance: DEXAMETHASONE
     Dosage: 5 MG
     Route: 048

REACTIONS (7)
  - Vomiting [Recovering/Resolving]
  - Crying [Recovering/Resolving]
  - Flatulence [Recovering/Resolving]
  - Nausea [Recovering/Resolving]
  - Pain [Recovering/Resolving]
  - Abdominal pain upper [Recovering/Resolving]
  - Dizziness [Recovering/Resolving]

NARRATIVE: CASE EVENT DATE: 20200811
